APPROVED DRUG PRODUCT: PREDNISOLONE ACETATE
Active Ingredient: PREDNISOLONE ACETATE
Strength: 1%
Dosage Form/Route: SUSPENSION/DROPS;OPHTHALMIC
Application: A218256 | Product #001 | TE Code: AB
Applicant: AMNEAL EU LTD
Approved: Jun 11, 2025 | RLD: No | RS: No | Type: RX